FAERS Safety Report 5744316-5 (Version None)
Quarter: 2008Q2

REPORT INFORMATION
  Report Type: 
  Country: None (occurrence: None)
  Receive Date: 20080516
  Receipt Date: 20080516
  Transmission Date: 20081010
  Serious: Yes (Hospitalization)
  Sender: FDA-Public Use
  Company Number: None

PATIENT
  Age: 86 Year
  Sex: Male

DRUGS (1)
  1. ZOCOR [Suspect]
     Dosage: 40 MG DAILY PO
     Route: 048

REACTIONS (3)
  - ASTHENIA [None]
  - MUSCLE SPASMS [None]
  - RHABDOMYOLYSIS [None]
